FAERS Safety Report 9417787 (Version 1)
Quarter: 2013Q3

REPORT INFORMATION
  Report Type: Spontaneous
  Country: GB (occurrence: GB)
  Receive Date: 20130724
  Receipt Date: 20130724
  Transmission Date: 20140515
  Serious: Yes (Life-Threatening)
  Sender: FDA-Public Use
  Company Number: GB-GLAXOSMITHKLINE-B0909357A

PATIENT
  Age: 54 Year
  Sex: Female

DRUGS (9)
  1. VOTRIENT [Suspect]
     Indication: METASTATIC RENAL CELL CARCINOMA
     Dosage: 800MG PER DAY
     Route: 048
     Dates: start: 20130502, end: 20130624
  2. LANSOPRAZOLE [Concomitant]
  3. OXYCODONE [Concomitant]
  4. DEXAMETHASONE [Concomitant]
  5. DICLOFENAC [Concomitant]
  6. TRAMADOL [Concomitant]
  7. CO-CODAMOL [Concomitant]
  8. LOPERAMIDE [Concomitant]
  9. METOCLOPRAMIDE [Concomitant]

REACTIONS (2)
  - Duodenal ulcer perforation [Recovering/Resolving]
  - Abdominal pain [Recovering/Resolving]
